FAERS Safety Report 7607913-8 (Version None)
Quarter: 2011Q3

REPORT INFORMATION
  Report Type: 
  Country: None (occurrence: None)
  Receive Date: 20110714
  Receipt Date: 20090213
  Transmission Date: 20111222
  Serious: Yes (Death, Hospitalization)
  Sender: FDA-Public Use
  Company Number: US-BAYER-200912682NA

PATIENT
  Age: 80 Year
  Sex: Female
  Weight: 85 kg

DRUGS (23)
  1. POTASSIUM [Concomitant]
     Dosage: 10 MEQ, BID
     Route: 048
     Dates: end: 20070101
  2. MACRODANTIN [Concomitant]
     Dosage: 100 MG, HS
     Route: 048
     Dates: end: 20070101
  3. PLATELETS [Concomitant]
     Dosage: 2 U, UNK
     Dates: start: 20070605
  4. TRASYLOL [Suspect]
     Indication: MITRAL VALVE REPLACEMENT
  5. FRESH FROZEN PLASMA [Concomitant]
     Dosage: 4 U, UNK
     Dates: start: 20070605
  6. DOBUTAMINE HCL [Concomitant]
     Dosage: TITRATION
     Route: 042
     Dates: start: 20070605
  7. HEPARIN [Concomitant]
     Dosage: 3000 U, UNK
     Route: 042
     Dates: start: 20070605, end: 20070605
  8. FENTANYL [Concomitant]
     Dosage: 20 CC (TITRATION)
     Route: 042
     Dates: start: 20070605, end: 20070605
  9. TRASYLOL [Suspect]
     Indication: ENDOCARDITIS
     Dosage: 200 ML PUMP PRIME (LOADING DOSE)
     Route: 042
     Dates: start: 20070605, end: 20070605
  10. CALCIUM CARBONATE [Concomitant]
     Dosage: 1000 MG, QD
     Route: 048
     Dates: end: 20070101
  11. EPINEPHRINE [Concomitant]
     Dosage: TITRATION
     Route: 042
     Dates: start: 20070605
  12. PROTAMINE SULFATE [Concomitant]
     Dosage: 25 MG, UNK
     Route: 042
     Dates: start: 20070605, end: 20070605
  13. SODIUM BICARBONATE [Concomitant]
     Dosage: 1 AMPULE PUMP
     Route: 042
     Dates: start: 20070605, end: 20070605
  14. ZETIA [Concomitant]
     Indication: BLOOD CHOLESTEROL INCREASED
     Dosage: 10 MG, HS
     Route: 048
     Dates: start: 19970101, end: 20070101
  15. VERSED [Concomitant]
     Dosage: TITRATION
     Route: 042
     Dates: start: 20070605
  16. TOPROL-XL [Concomitant]
     Indication: HYPERTENSION
     Dosage: 50 MG, BID
     Route: 048
     Dates: start: 19970101, end: 20070101
  17. LASIX [Concomitant]
     Indication: DIURETIC THERAPY
     Dosage: 80 MG, BID
     Route: 048
     Dates: end: 20070101
  18. PRAVACHOL [Concomitant]
     Indication: CHOLESTEROSIS
     Dosage: 80 MG, HS
     Route: 048
     Dates: end: 20070101
  19. ASPIRIN [Concomitant]
     Dosage: 81 MG, HS
     Route: 048
     Dates: end: 20070101
  20. RED BLOOD CELLS [Concomitant]
     Dosage: 6 U, UNK
     Dates: start: 20070605
  21. LATANOPROST [Concomitant]
     Dosage: AT NIGHT
     Route: 047
     Dates: end: 20070101
  22. MILRINONE [Concomitant]
     Dosage: TITRATION
     Route: 042
     Dates: start: 20070605
  23. MANNITOL [Concomitant]
     Dosage: 25 G, UNK
     Route: 042
     Dates: start: 20070605, end: 20070605

REACTIONS (5)
  - RENAL FAILURE ACUTE [None]
  - RENAL FAILURE [None]
  - PAIN [None]
  - INJURY [None]
  - UNEVALUABLE EVENT [None]
